FAERS Safety Report 15446383 (Version 1)
Quarter: 2018Q3

REPORT INFORMATION
  Report Type: Spontaneous
  Country: US (occurrence: US)
  Receive Date: 20180925
  Receipt Date: 20180925
  Transmission Date: 20181010
  Serious: Yes (Other)
  Sender: FDA-Public Use
  Company Number: None

PATIENT
  Age: 40 Day
  Sex: Male
  Weight: 76.05 kg

DRUGS (1)
  1. METHYLPHENIDATE 18MG TAB,SA [Suspect]
     Active Substance: METHYLPHENIDATE
     Indication: ATTENTION DEFICIT/HYPERACTIVITY DISORDER
     Dosage: ?          QUANTITY:1 TABLET(S);?
     Route: 048
     Dates: start: 20180912, end: 20180918

REACTIONS (6)
  - Product substitution issue [None]
  - Drug effect decreased [None]
  - Headache [None]
  - Abdominal discomfort [None]
  - Disturbance in attention [None]
  - Cognitive disorder [None]

NARRATIVE: CASE EVENT DATE: 20180912
